FAERS Safety Report 16865928 (Version 1)
Quarter: 2019Q3

REPORT INFORMATION
  Report Type: Spontaneous
  Country: US (occurrence: US)
  Receive Date: 20190930
  Receipt Date: 20190930
  Transmission Date: 20191005
  Serious: No
  Sender: FDA-Public Use
  Company Number: US-ALLERGAN-1915412US

PATIENT
  Sex: Female

DRUGS (4)
  1. VRAYLAR [Suspect]
     Active Substance: CARIPRAZINE
     Dosage: 1.5 MG
     Route: 065
     Dates: start: 201903, end: 201903
  2. LINZESS [Concomitant]
     Active Substance: LINACLOTIDE
     Indication: PRODUCT USED FOR UNKNOWN INDICATION
     Route: 065
  3. VRAYLAR [Suspect]
     Active Substance: CARIPRAZINE
     Indication: PRODUCT USED FOR UNKNOWN INDICATION
     Dosage: 1.5 MG
     Route: 065
     Dates: start: 201903
  4. PHENTERMINE. [Concomitant]
     Active Substance: PHENTERMINE
     Indication: CONTRACEPTION

REACTIONS (4)
  - Crying [Unknown]
  - Product dose omission [Unknown]
  - Panic attack [Unknown]
  - Hallucination [Unknown]

NARRATIVE: CASE EVENT DATE: 201903
